FAERS Safety Report 20713744 (Version 2)
Quarter: 2022Q2

REPORT INFORMATION
  Report Type: Report from Study
  Country: JP (occurrence: JP)
  Receive Date: 20220415
  Receipt Date: 20220614
  Transmission Date: 20220721
  Serious: No
  Sender: FDA-Public Use
  Company Number: JP-BIOGEN-2022BI01114378

PATIENT
  Age: 33 Year
  Sex: Male
  Weight: 60 kg

DRUGS (15)
  1. TECFIDERA [Suspect]
     Active Substance: DIMETHYL FUMARATE
     Indication: Relapsing-remitting multiple sclerosis
     Route: 048
     Dates: start: 20180203, end: 20190612
  2. TECFIDERA [Suspect]
     Active Substance: DIMETHYL FUMARATE
     Route: 048
     Dates: start: 20190618, end: 201910
  3. ALLEGRA [Concomitant]
     Active Substance: FEXOFENADINE HYDROCHLORIDE
     Route: 048
     Dates: start: 20180601
  4. LOXOPROFEN SODIUM [Concomitant]
     Active Substance: LOXOPROFEN SODIUM
     Route: 050
     Dates: start: 20181116, end: 20190222
  5. ROSUVASTATIN CALCIUM [Concomitant]
     Active Substance: ROSUVASTATIN CALCIUM
     Dosage: 2.5-5 MG/DAY
     Route: 048
     Dates: start: 20190612
  6. PREDONINE [Concomitant]
     Active Substance: PREDNISOLONE
     Indication: Multiple sclerosis relapse
     Dosage: 5-60 MG/ DAY
     Route: 048
     Dates: start: 20190619, end: 20191226
  7. AZULENE [Concomitant]
     Active Substance: AZULENE
     Route: 065
     Dates: start: 20190618, end: 20190618
  8. PEMAFIBRATE [Concomitant]
     Active Substance: PEMAFIBRATE
     Route: 065
     Dates: start: 20190705, end: 20190705
  9. LANSOPRAZOLE [Concomitant]
     Active Substance: LANSOPRAZOLE
     Route: 048
     Dates: start: 20190707
  10. NOVOLIN R [Concomitant]
     Active Substance: INSULIN HUMAN
     Indication: Steroid diabetes
     Route: 058
     Dates: start: 20190708, end: 20191019
  11. OSELTAMIVIR [Concomitant]
     Active Substance: OSELTAMIVIR
     Dosage: 75 (UNIT UNSPECIFIED)/DAY
     Route: 048
     Dates: start: 20191022, end: 20191022
  12. METGLUCO [Concomitant]
     Active Substance: METFORMIN HYDROCHLORIDE
     Indication: Steroid diabetes
     Dosage: 250-500 MG/DAY
     Route: 048
     Dates: start: 20191101, end: 20191226
  13. SOLDEM 3A [Concomitant]
     Active Substance: CARBOHYDRATES\POTASSIUM CHLORIDE\SODIUM CHLORIDE\SODIUM LACTATE
     Indication: Multiple sclerosis relapse
     Route: 065
     Dates: start: 20190612, end: 20191103
  14. SOLU-MEDROL [Concomitant]
     Active Substance: METHYLPREDNISOLONE SODIUM SUCCINATE
     Indication: Multiple sclerosis relapse
     Route: 042
     Dates: start: 20190612, end: 20191103
  15. CALCIUM CHLORIDE\POTASSIUM CHLORIDE\SODIUM ACETATE\SODIUM CHLORIDE [Concomitant]
     Active Substance: CALCIUM CHLORIDE\POTASSIUM CHLORIDE\SODIUM ACETATE\SODIUM CHLORIDE
     Route: 042
     Dates: start: 20190612, end: 20190612

REACTIONS (2)
  - Insomnia [Recovered/Resolved]
  - Therapeutic product effect incomplete [Unknown]

NARRATIVE: CASE EVENT DATE: 20190707
